FAERS Safety Report 9278787 (Version 2)
Quarter: 2013Q3

REPORT INFORMATION
  Report Type: Spontaneous
  Country: BR (occurrence: BR)
  Receive Date: 20130508
  Receipt Date: 20130823
  Transmission Date: 20140515
  Serious: Yes (Other)
  Sender: FDA-Public Use
  Company Number: BR-ABBOTT-13P-020-1047603-00

PATIENT
  Age: 68 Year
  Sex: Female
  Weight: 65 kg

DRUGS (12)
  1. HUMIRA [Suspect]
     Indication: RHEUMATOID ARTHRITIS
     Route: 048
     Dates: start: 201210, end: 201304
  2. ATENOLOL [Concomitant]
     Indication: HYPERTENSION
     Route: 048
  3. HYDROCHLOROTHIAZIDE [Concomitant]
     Indication: HYPERTENSION
     Route: 048
  4. LOSARTAN [Concomitant]
     Indication: HYPERTENSION
     Route: 048
  5. ANCORON [Concomitant]
     Indication: CARDIAC DISORDER
     Dosage: 200 MG QAM
     Dates: start: 2012
  6. ULTRACET [Concomitant]
     Indication: ANXIOLYTIC THERAPY
     Dosage: 37.5MG+325MG PRN
     Route: 048
  7. ULTRACET [Concomitant]
     Indication: PAIN
  8. CYMBALTA [Concomitant]
     Indication: ANXIOLYTIC THERAPY
     Route: 048
  9. CYMBALTA [Concomitant]
     Indication: SPINAL DISORDER
  10. METHOTREXATE [Concomitant]
     Indication: RHEUMATOID ARTHRITIS
     Route: 048
  11. PURAN T4 [Concomitant]
     Indication: THYROID DISORDER
     Route: 048
  12. PREDNISONE [Concomitant]
     Indication: PAIN
     Dosage: EVERY DAY AT MORNING
     Route: 048

REACTIONS (7)
  - Varicose vein [Unknown]
  - Vein disorder [Unknown]
  - Swelling [Not Recovered/Not Resolved]
  - Inflammation [Not Recovered/Not Resolved]
  - Pain [Not Recovered/Not Resolved]
  - Rash macular [Unknown]
  - Inflammation of wound [Recovered/Resolved]
